FAERS Safety Report 20073005 (Version 1)
Quarter: 2021Q4

REPORT INFORMATION
  Report Type: Report from Study
  Country: US (occurrence: US)
  Receive Date: 20211116
  Receipt Date: 20211116
  Transmission Date: 20220304
  Serious: No
  Sender: FDA-Public Use
  Company Number: US-BIOVITRUM-2021US1013

PATIENT
  Sex: Female

DRUGS (3)
  1. DOPTELET [Suspect]
     Active Substance: AVATROMBOPAG MALEATE
     Indication: Product used for unknown indication
     Route: 048
  2. DOPTELET [Suspect]
     Active Substance: AVATROMBOPAG MALEATE
     Route: 048
  3. DOPTELET [Suspect]
     Active Substance: AVATROMBOPAG MALEATE
     Route: 048

REACTIONS (1)
  - Platelet count decreased [Unknown]
